FAERS Safety Report 8152151-6 (Version None)
Quarter: 2012Q1

REPORT INFORMATION
  Report Type: 
  Country: None (occurrence: None)
  Receive Date: 20120214
  Receipt Date: 20120130
  Transmission Date: 20120608
  Serious: Yes (Hospitalization, Other)
  Sender: FDA-Public Use
  Company Number: 2011PV000047

PATIENT
  Age: 63 Year
  Sex: Female

DRUGS (8)
  1. DEPOCYT [Suspect]
     Indication: METASTASES TO MENINGES
     Dosage: 50 MG, INTH
     Route: 037
     Dates: start: 20110301, end: 20110706
  2. OXAZEPAM [Concomitant]
  3. NOVALGIN [Concomitant]
  4. LYRICA [Concomitant]
  5. BENALAPRIL [Concomitant]
  6. DEXAMETHASONE [Concomitant]
  7. ARIMIDEX [Concomitant]
  8. PANTOPRAZOLE [Concomitant]

REACTIONS (3)
  - CSF PRESSURE INCREASED [None]
  - VISUAL ACUITY REDUCED [None]
  - PAPILLOEDEMA [None]
